FAERS Safety Report 21387665 (Version 2)
Quarter: 2022Q3

REPORT INFORMATION
  Report Type: Spontaneous
  Country: EG (occurrence: EG)
  Receive Date: 20220928
  Receipt Date: 20220930
  Transmission Date: 20221027
  Serious: Yes (Life-Threatening)
  Sender: FDA-Public Use
  Company Number: EG-NOVARTISPH-NVSC2022EG219847

PATIENT
  Age: 9 Year
  Sex: Male

DRUGS (6)
  1. CEFTRIAXONE SODIUM [Suspect]
     Active Substance: CEFTRIAXONE SODIUM
     Indication: Gastroenteritis
     Dosage: 1000 MG (VIAL)
     Route: 030
     Dates: start: 20220918, end: 20220918
  2. CEFTRIAXONE SODIUM [Suspect]
     Active Substance: CEFTRIAXONE SODIUM
     Indication: Respiratory tract infection bacterial
  3. CEFTRIAXONE SODIUM [Suspect]
     Active Substance: CEFTRIAXONE SODIUM
     Indication: Pyrexia
  4. LIDOCAINE [Suspect]
     Active Substance: LIDOCAINE
     Indication: Gastroenteritis
     Dosage: (AS A SOLVENT)
     Route: 065
  5. LIDOCAINE [Suspect]
     Active Substance: LIDOCAINE
     Indication: Respiratory tract infection bacterial
  6. LIDOCAINE [Suspect]
     Active Substance: LIDOCAINE
     Indication: Pyrexia

REACTIONS (1)
  - Anaphylactic reaction [Recovered/Resolved]

NARRATIVE: CASE EVENT DATE: 20220918
